FAERS Safety Report 17909113 (Version 1)
Quarter: 2020Q2

REPORT INFORMATION
  Report Type: Spontaneous
  Country: US (occurrence: US)
  Receive Date: 20200618
  Receipt Date: 20200618
  Transmission Date: 20200714
  Serious: Yes (Hospitalization, Other)
  Sender: FDA-Public Use
  Company Number: US-ROCHE-2624479

PATIENT
  Sex: Male

DRUGS (3)
  1. AVASTIN [Suspect]
     Active Substance: BEVACIZUMAB
     Indication: NEOPLASM PROGRESSION
     Route: 042
     Dates: start: 202003
  2. VINBLASTIN [Concomitant]
     Active Substance: VINBLASTINE
     Indication: NEOPLASM PROGRESSION
     Route: 065
     Dates: start: 202003
  3. SOMATULINE [LANREOTIDE] [Concomitant]
     Active Substance: LANREOTIDE

REACTIONS (8)
  - Neutropenia [Unknown]
  - Diarrhoea [Unknown]
  - Injection site pain [Unknown]
  - Visual impairment [Unknown]
  - Acromegaly [Unknown]
  - Constipation [Unknown]
  - Optic nerve neoplasm [Unknown]
  - Pain [Unknown]
